FAERS Safety Report 16663617 (Version 2)
Quarter: 2019Q3

REPORT INFORMATION
  Report Type: Report from Study
  Country: US (occurrence: US)
  Receive Date: 20190802
  Receipt Date: 20190815
  Transmission Date: 20191004
  Serious: Yes (Hospitalization)
  Sender: FDA-Public Use
  Company Number: US-PFIZER INC-2019326833

PATIENT
  Age: 2 Year
  Sex: Female
  Weight: 12.6 kg

DRUGS (11)
  1. VINCRISTINE SULFATE. [Suspect]
     Active Substance: VINCRISTINE SULFATE
     Indication: NEOPLASM MALIGNANT
     Dosage: UNK
     Route: 042
     Dates: start: 20190523, end: 20190530
  2. VENETOCLAX. [Suspect]
     Active Substance: VENETOCLAX
     Dosage: TABLET FOR ORAL SUSPENSION, 15MG, 1 IN 1 D
     Route: 045
     Dates: start: 20190707, end: 20190707
  3. PEG/L-ASPARAGINASE [Suspect]
     Active Substance: PEGASPARGASE
     Indication: NEOPLASM MALIGNANT
     Dosage: 1449.9 IU, UNK
     Route: 048
     Dates: start: 20190524, end: 20190524
  4. PEG/L-ASPARAGINASE [Suspect]
     Active Substance: PEGASPARGASE
     Dosage: 1449.9 IU, UNK
     Route: 048
     Dates: start: 20190606, end: 20190606
  5. CYTARABINE. [Suspect]
     Active Substance: CYTARABINE
     Indication: NEOPLASM MALIGNANT
     Dosage: 500 MG/M2, 1 IN 1 D
     Route: 042
     Dates: start: 20190712, end: 20190719
  6. VENETOCLAX. [Suspect]
     Active Substance: VENETOCLAX
     Dosage: TABLET FOR ORAL SUSPENSION, 120MG, 1 IN 1 D
     Route: 045
     Dates: start: 20190521, end: 20190521
  7. VENETOCLAX. [Suspect]
     Active Substance: VENETOCLAX
     Dosage: TABLET FOR ORAL SUSPENSION, 250MG, 1 IN 1 D
     Route: 045
     Dates: start: 20190522, end: 20190701
  8. LEVOFLOXACIN. [Concomitant]
     Active Substance: LEVOFLOXACIN
     Indication: PROPHYLAXIS
     Dosage: 130 MG, 2X/DAY
     Route: 048
     Dates: start: 20190621
  9. VENETOCLAX. [Suspect]
     Active Substance: VENETOCLAX
     Dosage: TABLET FOR ORAL SUSPENSION, 30MG, 1 IN 1 D
     Route: 045
     Dates: start: 20190708
  10. CYTARABINE. [Suspect]
     Active Substance: CYTARABINE
     Dosage: 500 MG/M2
     Route: 048
     Dates: start: 20190712
  11. VENETOCLAX. [Suspect]
     Active Substance: VENETOCLAX
     Indication: NEOPLASM MALIGNANT
     Dosage: TABLET FOR ORAL SUSPENSION, 50MG, 1 IN 1 D
     Route: 045
     Dates: start: 20190520, end: 20190520

REACTIONS (2)
  - Pulmonary mycosis [Recovered/Resolved]
  - Febrile neutropenia [Recovered/Resolved]

NARRATIVE: CASE EVENT DATE: 20190702
